FAERS Safety Report 24555551 (Version 1)
Quarter: 2024Q4

REPORT INFORMATION
  Report Type: Spontaneous
  Country: US (occurrence: None)
  Receive Date: 20241025
  Receipt Date: 20241025
  Transmission Date: 20250115
  Serious: No
  Sender: Public
  Company Number: None

PATIENT
  Age: 26 Year
  Sex: Male
  Weight: 56.25 kg

DRUGS (1)
  1. DOXYCYCLINE [Suspect]
     Active Substance: DOXYCYCLINE
     Dates: start: 20241019, end: 20241022

REACTIONS (3)
  - Dyspepsia [None]
  - Middle insomnia [None]
  - Oesophageal disorder [None]

NARRATIVE: CASE EVENT DATE: 20241021
